FAERS Safety Report 8259666-0 (Version None)
Quarter: 2012Q1

REPORT INFORMATION
  Report Type: 
  Country: None (occurrence: None)
  Receive Date: 20120327
  Receipt Date: 20080908
  Transmission Date: 20120608
  Serious: Yes (Other)
  Sender: FDA-Public Use
  Company Number: PHEH2008US07813

PATIENT
  Age: 49 Year
  Sex: Male
  Weight: 37.6 kg

DRUGS (1)
  1. GLEEVEC [Suspect]
     Indication: CHRONIC MYELOID LEUKAEMIA
     Dosage: 600 MG, BID; 600 MG, QD
     Dates: start: 20080806, end: 20080830

REACTIONS (3)
  - GOUT [None]
  - INCORRECT DOSE ADMINISTERED [None]
  - ACCIDENTAL OVERDOSE [None]
